FAERS Safety Report 18161090 (Version 2)
Quarter: 2020Q4

REPORT INFORMATION
  Report Type: Other
  Country: DE (occurrence: DE)
  Receive Date: 20200817
  Receipt Date: 20201202
  Transmission Date: 20210113
  Serious: Yes (Death)
  Sender: FDA-Public Use
  Company Number: DE-DEXPHARM-20190656

PATIENT
  Age: 52 Year
  Sex: Male
  Weight: 58 kg

DRUGS (10)
  1. CAFFEINE. [Concomitant]
     Active Substance: CAFFEINE
  2. MORPHINE [Concomitant]
     Active Substance: MORPHINE
  3. FLUPIRTINE [Concomitant]
     Active Substance: FLUPIRTINE
  4. VENLAFAXINE [Suspect]
     Active Substance: VENLAFAXINE HYDROCHLORIDE
  5. BISOPROLOL [Concomitant]
     Active Substance: BISOPROLOL
  6. RAMIPRIL. [Concomitant]
     Active Substance: RAMIPRIL
     Indication: HYPERTENSION
  7. OXYCODONE [Concomitant]
     Active Substance: OXYCODONE
  8. SALICYLIC ACID. [Concomitant]
     Active Substance: SALICYLIC ACID
  9. METAMIZOLE [Concomitant]
     Active Substance: METAMIZOLE
  10. IBUPROFEN. [Concomitant]
     Active Substance: IBUPROFEN

REACTIONS (3)
  - Respiratory tract infection [Fatal]
  - Fluid overload [Fatal]
  - Drug interaction [Fatal]
